FAERS Safety Report 10083418 (Version 1)
Quarter: 2014Q2

REPORT INFORMATION
  Report Type: Spontaneous
  Country: US (occurrence: None)
  Receive Date: 20140415
  Receipt Date: 20140415
  Transmission Date: 20141212
  Serious: Yes (Disabling, Other)
  Sender: FDA-Public Use
  Company Number: 2014P1002944

PATIENT
  Age: 30 Year
  Sex: Female

DRUGS (4)
  1. PREDNISONE [Suspect]
     Indication: HYPERSENSITIVITY
     Route: 048
  2. PREDNISONE [Suspect]
     Indication: URTICARIA
     Route: 048
  3. METHYLPREDNISOLONE [Suspect]
     Indication: HYPERSENSITIVITY
     Route: 042
  4. ANTIHISTAMINE [Concomitant]

REACTIONS (4)
  - Diabetes mellitus [None]
  - Toxicity to various agents [None]
  - Pancreatic disorder [None]
  - Muscle spasms [None]
